FAERS Safety Report 12255463 (Version 1)
Quarter: 2016Q2

REPORT INFORMATION
  Report Type: Spontaneous
  Country: US (occurrence: US)
  Receive Date: 20160412
  Receipt Date: 20160412
  Transmission Date: 20160815
  Serious: Yes (Hospitalization)
  Sender: FDA-Public Use
  Company Number: US-BEH-2016060925

PATIENT
  Age: 72 Year
  Sex: Female
  Weight: 117 kg

DRUGS (25)
  1. VITAMIN B12 [Concomitant]
     Active Substance: CYANOCOBALAMIN
  2. RISPERDAL [Concomitant]
     Active Substance: RISPERIDONE
  3. INSULIN SYR [Concomitant]
  4. HIZENTRA [Suspect]
     Active Substance: HUMAN IMMUNOGLOBULIN G
     Indication: IMMUNODEFICIENCY COMMON VARIABLE
     Dosage: STRENGTH OF DOSAGE FORM: 1GM 5ML, 10GM 50ML VIALS
     Route: 058
  5. ARICEPT [Concomitant]
     Active Substance: DONEPEZIL HYDROCHLORIDE
  6. NITROSTAT [Concomitant]
     Active Substance: NITROGLYCERIN
  7. COUMADIN [Concomitant]
     Active Substance: WARFARIN SODIUM
  8. NOVOLOG [Concomitant]
     Active Substance: INSULIN ASPART
  9. ZYRTEC [Concomitant]
     Active Substance: CETIRIZINE HYDROCHLORIDE
  10. CLONIDINE. [Concomitant]
     Active Substance: CLONIDINE
  11. MELATONIN [Concomitant]
     Active Substance: MELATONIN
  12. NOVOLOG [Concomitant]
     Active Substance: INSULIN ASPART
  13. METOPROLOL. [Concomitant]
     Active Substance: METOPROLOL
  14. LIDODERM [Concomitant]
     Active Substance: LIDOCAINE
  15. VITAMIN D3 [Concomitant]
     Active Substance: CHOLECALCIFEROL
  16. DIPHENHYDRAMINE. [Concomitant]
     Active Substance: DIPHENHYDRAMINE
  17. FOLIC ACID. [Concomitant]
     Active Substance: FOLIC ACID
  18. HIZENTRA [Suspect]
     Active Substance: HUMAN IMMUNOGLOBULIN G
     Dosage: STRENGTH OF DOSAGE FORM: 1GM 5ML, 10GM 50ML VIALS
     Route: 058
  19. LANTUS [Concomitant]
     Active Substance: INSULIN GLARGINE
  20. SENOKOT-S [Concomitant]
     Active Substance: DOCUSATE SODIUM\SENNOSIDES
  21. EPIPEN [Concomitant]
     Active Substance: EPINEPHRINE
  22. MIRALAX [Concomitant]
     Active Substance: POLYETHYLENE GLYCOL 3350
  23. TAMSULOSIN [Concomitant]
     Active Substance: TAMSULOSIN
  24. VALSARTAN. [Concomitant]
     Active Substance: VALSARTAN
  25. SIMVASTATIN. [Concomitant]
     Active Substance: SIMVASTATIN

REACTIONS (3)
  - Staphylococcal infection [Unknown]
  - Fatigue [Unknown]
  - Urinary tract infection [Unknown]

NARRATIVE: CASE EVENT DATE: 20160215
